FAERS Safety Report 4989620-3 (Version None)
Quarter: 2006Q2

REPORT INFORMATION
  Report Type: 
  Country: None (occurrence: None)
  Receive Date: 20060502
  Receipt Date: 20051102
  Transmission Date: 20061013
  Serious: Yes (Death, Hospitalization)
  Sender: FDA-Public Use
  Company Number: US-MERCK-0511USA00633

PATIENT
  Age: 78 Year
  Sex: Female
  Weight: 68 kg

DRUGS (24)
  1. VIOXX [Suspect]
     Indication: OSTEOARTHRITIS
     Route: 048
     Dates: start: 19991006, end: 20020524
  2. ASPIRIN [Concomitant]
     Route: 065
  3. AVELOX [Concomitant]
     Route: 065
  4. BENZONATATE [Concomitant]
     Route: 065
  5. BEXTRA [Concomitant]
     Route: 065
  6. CRESTOR [Concomitant]
     Route: 065
  7. FLONASE [Concomitant]
     Route: 065
  8. FOLIC ACID [Concomitant]
     Route: 065
  9. HYDROCHLOROTHIAZIDE [Concomitant]
     Route: 065
  10. VICODIN [Concomitant]
     Route: 065
  11. LACTULOSE [Concomitant]
     Route: 065
  12. AGYRAX (MECLIZINE HYDROCHLORIDE) [Concomitant]
     Route: 065
  13. METHOTREXATE [Concomitant]
     Route: 065
  14. NEXIUM [Concomitant]
     Route: 065
  15. NYSTATIN [Concomitant]
     Route: 065
  16. PRILOSEC [Concomitant]
     Route: 065
  17. PLAVIX [Concomitant]
     Route: 065
  18. PREDNISONE [Concomitant]
     Route: 065
  19. PRINIVIL [Concomitant]
     Route: 065
  20. DARVOCET [Concomitant]
     Route: 065
  21. SUCRALFATE [Concomitant]
     Route: 065
  22. TEQUIN [Concomitant]
     Route: 065
  23. WARFARIN [Concomitant]
     Route: 065
  24. ZITHROMAX [Concomitant]
     Route: 065

REACTIONS (25)
  - ACUTE MYOCARDIAL INFARCTION [None]
  - ARTERIOSCLEROSIS [None]
  - ARTHROPATHY [None]
  - BLOOD CHOLESTEROL INCREASED [None]
  - BRADYCARDIA [None]
  - CARDIAC ARREST [None]
  - CARDIAC FAILURE CONGESTIVE [None]
  - CARDIOMEGALY [None]
  - CHEST PAIN [None]
  - COLONIC POLYP [None]
  - CORONARY ARTERY DISEASE [None]
  - CORONARY ARTERY OCCLUSION [None]
  - CORONARY ARTERY STENOSIS [None]
  - GASTROINTESTINAL HAEMORRHAGE [None]
  - HAEMATOMA [None]
  - HIP ARTHROPLASTY [None]
  - HYPERTENSION [None]
  - HYPOTENSION [None]
  - LETHARGY [None]
  - MYOCARDIAL INFARCTION [None]
  - MYOCARDIAL ISCHAEMIA [None]
  - OEDEMA PERIPHERAL [None]
  - POLYTRAUMATISM [None]
  - RENAL FAILURE CHRONIC [None]
  - RESPIRATORY DISTRESS [None]
